FAERS Safety Report 25026382 (Version 1)
Quarter: 2025Q1

REPORT INFORMATION
  Report Type: Report from Study
  Country: US (occurrence: US)
  Receive Date: 20250301
  Receipt Date: 20250301
  Transmission Date: 20250409
  Serious: Yes (Other)
  Sender: AUROBINDO
  Company Number: US-AUROBINDO-AUR-APL-2025-003569

PATIENT
  Age: 53 Year
  Sex: Male

DRUGS (3)
  1. FLUOROURACIL [Suspect]
     Active Substance: FLUOROURACIL
     Indication: Rectal adenocarcinoma
     Route: 042
  2. OXALIPLATIN [Suspect]
     Active Substance: OXALIPLATIN
     Indication: Rectal adenocarcinoma
     Route: 042
  3. LEUCOVORIN [Suspect]
     Active Substance: LEUCOVORIN\LEUCOVORIN CALCIUM
     Indication: Chemotherapy
     Route: 042

REACTIONS (1)
  - Cardiotoxicity [Recovering/Resolving]
